FAERS Safety Report 7295361-2 (Version None)
Quarter: 2011Q1

REPORT INFORMATION
  Report Type: 
  Country: None (occurrence: None)
  Receive Date: 20110211
  Receipt Date: 20110211
  Transmission Date: 20110831
  Serious: Yes (Other)
  Sender: FDA-Public Use
  Company Number: None

PATIENT
  Age: 31 Year
  Sex: Female
  Weight: 90.7194 kg

DRUGS (1)
  1. MIRENA [Suspect]
     Indication: CONTRACEPTION
     Dosage: 1 5YEARS
     Dates: start: 20090801

REACTIONS (10)
  - FATIGUE [None]
  - PAIN [None]
  - ANXIETY [None]
  - APATHY [None]
  - FEELING ABNORMAL [None]
  - ABDOMINAL DISTENSION [None]
  - FLATULENCE [None]
  - LIBIDO DECREASED [None]
  - FUNGAL INFECTION [None]
  - HYPOAESTHESIA [None]
